FAERS Safety Report 8982621 (Version 1)
Quarter: 2012Q4

REPORT INFORMATION
  Report Type: 
  Country: GB (occurrence: GB)
  Receive Date: 20121221
  Receipt Date: 20121221
  Transmission Date: 20130627
  Serious: Yes (Life-Threatening, Hospitalization, Other)
  Sender: FDA-Public Use
  Company Number: GB-B.I. PHARMACEUTICALS,INC./RIDGEFIELD-2012-UK-01945UK

PATIENT
  Age: 68 Year
  Sex: Female

DRUGS (6)
  1. TRAJENTA [Suspect]
     Indication: DIABETES MELLITUS
     Dosage: 5 mg
     Route: 048
     Dates: start: 20121017, end: 20121029
  2. ROSUVASTATIN [Suspect]
     Indication: BLOOD CHOLESTEROL INCREASED
     Dosage: 40 mg
     Route: 048
  3. ASPIRIN [Concomitant]
     Dosage: 75 mg
     Route: 048
  4. FOLIC ACID [Concomitant]
     Dosage: 25 mg
     Route: 048
  5. IRBESARTAN [Concomitant]
     Dosage: 375 mg
     Route: 048
  6. METFORMIN [Concomitant]
     Dosage: 500 mg
     Route: 048

REACTIONS (3)
  - Blood creatine phosphokinase increased [Not Recovered/Not Resolved]
  - Drug interaction [Not Recovered/Not Resolved]
  - Rhabdomyolysis [Not Recovered/Not Resolved]
